FAERS Safety Report 21004063 (Version 1)
Quarter: 2022Q2

REPORT INFORMATION
  Report Type: Spontaneous
  Country: BR (occurrence: BR)
  Receive Date: 20220624
  Receipt Date: 20220624
  Transmission Date: 20220721
  Serious: Yes (Disabling)
  Sender: FDA-Public Use
  Company Number: BR-PFIZER INC-202200876267

PATIENT
  Sex: Male

DRUGS (3)
  1. ALPRAZOLAM [Suspect]
     Active Substance: ALPRAZOLAM
     Indication: Anxiety
     Dosage: 2 MG SPLITS IT INTO 4, TAKING ONE PART (0.5MG) IN THE MORNING AND ONE IN THE AFTERNOON/EVENING
  2. ALBUTEROL [Concomitant]
     Active Substance: ALBUTEROL
  3. ATROVENT [Concomitant]
     Active Substance: IPRATROPIUM BROMIDE

REACTIONS (2)
  - Cardiac disorder [Unknown]
  - Chronic obstructive pulmonary disease [Unknown]
